FAERS Safety Report 5897921-X (Version None)
Quarter: 2008Q3

REPORT INFORMATION
  Report Type: 
  Country: None (occurrence: None)
  Receive Date: 20080925
  Receipt Date: 20080918
  Transmission Date: 20090109
  Serious: Yes (Hospitalization, Other)
  Sender: FDA-Public Use
  Company Number: GB-TEVA-177563ISR

PATIENT
  Age: 81 Year
  Sex: Male

DRUGS (6)
  1. AMLODIPINE [Suspect]
  2. ATENOLOL [Suspect]
  3. LISINOPRIL [Suspect]
  4. OLMESARTAN MEDOXOMIL [Suspect]
     Route: 048
  5. OMEPRAZOLE [Suspect]
  6. ISOSORBIDE [Suspect]

REACTIONS (8)
  - BRADYCARDIA [None]
  - HYPOCALCAEMIA [None]
  - HYPOKALAEMIA [None]
  - HYPOMAGNESAEMIA [None]
  - HYPOTENSION [None]
  - NAUSEA [None]
  - URINARY TRACT INFECTION [None]
  - VOMITING [None]
